FAERS Safety Report 5459580-X (Version None)
Quarter: 2007Q3

REPORT INFORMATION
  Report Type: 
  Country: None (occurrence: None)
  Receive Date: 20070919
  Receipt Date: 20070914
  Transmission Date: 20080115
  Serious: Yes (Hospitalization)
  Sender: FDA-Public Use
  Company Number: HQWYE531724MAY06

PATIENT
  Age: 2 Year
  Sex: Male
  Weight: 13 kg

DRUGS (3)
  1. ADVIL [Suspect]
     Indication: PYREXIA
     Dosage: UNKNOWN
     Route: 048
     Dates: start: 20060318, end: 20060322
  2. ULTRA LEVURA [Suspect]
     Indication: GASTROENTERITIS
     Dosage: UNKNOWN
     Route: 065
     Dates: start: 20060318, end: 20060318
  3. MOTILIUM [Suspect]
     Indication: GASTROENTERITIS
     Dosage: UNKNOWN
     Route: 065
     Dates: start: 20060318, end: 20060318

REACTIONS (1)
  - RENAL FAILURE ACUTE [None]
